FAERS Safety Report 5659078-X (Version None)
Quarter: 2008Q1

REPORT INFORMATION
  Report Type: 
  Country: None (occurrence: None)
  Receive Date: 20080310
  Receipt Date: 20080226
  Transmission Date: 20080703
  Serious: Yes (Other)
  Sender: FDA-Public Use
  Company Number: US-BAYER-200810823BCC

PATIENT
  Age: 70 Year
  Sex: Male
  Weight: 88 kg

DRUGS (12)
  1. ALEVE [Suspect]
     Indication: BACK PAIN
     Dosage: TOTAL DAILY DOSE: 880 MG  UNIT DOSE: 220 MG
     Route: 048
     Dates: start: 20080129, end: 20080201
  2. PRILOSEC [Concomitant]
     Route: 048
     Dates: start: 20080101, end: 20080201
  3. TYLENOL (CAPLET) [Concomitant]
  4. LIPITOR [Concomitant]
  5. PULMICORT [Concomitant]
  6. VITAMIN COTTAGE MEGA ONE DAY [Concomitant]
  7. COQ10 [Concomitant]
  8. ZYRTEC [Concomitant]
  9. ARGININE [Concomitant]
  10. ORNITHINE [Concomitant]
  11. AL-CARNITINE [Concomitant]
  12. ECOTRIN [Concomitant]

REACTIONS (1)
  - HAEMATOCHEZIA [None]
